FAERS Safety Report 19030884 (Version 1)
Quarter: 2021Q1

REPORT INFORMATION
  Report Type: Spontaneous
  Country: JP (occurrence: JP)
  Receive Date: 20210319
  Receipt Date: 20210319
  Transmission Date: 20210420
  Serious: Yes (Death, Life-Threatening, Hospitalization, Other)
  Sender: FDA-Public Use
  Company Number: JP-ACCORD-219578

PATIENT
  Age: 60 Year
  Sex: Female

DRUGS (4)
  1. MILRINONE\MILRINONE LACTATE [Suspect]
     Active Substance: MILRINONE\MILRINONE LACTATE
     Indication: RIGHT VENTRICULAR FAILURE
     Route: 042
  2. DOBUTAMINE [Suspect]
     Active Substance: DOBUTAMINE HYDROCHLORIDE
     Indication: RIGHT VENTRICULAR FAILURE
     Dosage: PROLONGED
     Route: 042
  3. CARPERITIDE [Suspect]
     Active Substance: CARPERITIDE
     Indication: RIGHT VENTRICULAR FAILURE
     Dosage: PROLONGED
     Route: 042
  4. FUROSEMIDE. [Suspect]
     Active Substance: FUROSEMIDE
     Indication: RIGHT VENTRICULAR FAILURE
     Dosage: INTERMITTENT
     Route: 042

REACTIONS (11)
  - Inflammation [Fatal]
  - Cardiac murmur [Fatal]
  - Bacteraemia [Fatal]
  - Achromobacter infection [Fatal]
  - Device related sepsis [Fatal]
  - Citrobacter infection [Fatal]
  - Cardiac failure [Fatal]
  - Prosthetic cardiac valve stenosis [Fatal]
  - Multiple organ dysfunction syndrome [Fatal]
  - Endocarditis [Fatal]
  - Staphylococcal infection [Fatal]
